FAERS Safety Report 19317854 (Version 1)
Quarter: 2021Q2

REPORT INFORMATION
  Report Type: Spontaneous
  Country: NL (occurrence: NL)
  Receive Date: 20210528
  Receipt Date: 20210528
  Transmission Date: 20210717
  Serious: Yes (Other)
  Sender: FDA-Public Use
  Company Number: NL-AUROBINDO-AUR-APL-2021-021715

PATIENT
  Age: 87 Year
  Sex: Male

DRUGS (2)
  1. CLONAZEPAM. [Concomitant]
     Active Substance: CLONAZEPAM
     Indication: MYOCLONUS
     Dosage: 0.5 MILLIGRAM, ONCE A DAY
     Route: 048
  2. LEVETIRACETAM. [Suspect]
     Active Substance: LEVETIRACETAM
     Indication: MYOCLONUS
     Dosage: 1500 MILLIGRAM, ONCE A DAY
     Route: 048

REACTIONS (5)
  - Myoclonus [Unknown]
  - Delirium [Unknown]
  - Urinary tract infection [Unknown]
  - Product use issue [Unknown]
  - Encephalopathy [Unknown]
